FAERS Safety Report 9809220 (Version 4)
Quarter: 2014Q1

REPORT INFORMATION
  Report Type: Spontaneous
  Country: CA (occurrence: CA)
  Receive Date: 20140110
  Receipt Date: 20140224
  Transmission Date: 20141002
  Serious: Yes (Hospitalization)
  Sender: FDA-Public Use
  Company Number: CA-BAXTER-2014BAX000666

PATIENT
  Age: 73 Year
  Sex: Male

DRUGS (4)
  1. DIANEAL PD4 SOLUTION WITH 1.5% DEXTROSE AND 2.5 MEQ/L CALCIUM [Suspect]
     Indication: PERITONEAL DIALYSIS
     Dosage: 1 BAG
     Route: 033
  2. DIANEAL PD4 SOLUTION WITH 2.5% DEXTROSE AND 2.5 MEQ/L CALCIUM [Suspect]
     Indication: PERITONEAL DIALYSIS
     Dosage: 2 BAGS
     Route: 033
     Dates: start: 20140125, end: 20140126
  3. DIANEAL PD4 SOLUTION WITH 2.5% DEXTROSE AND 2.5 MEQ/L CALCIUM [Suspect]
     Route: 033
     Dates: start: 20140128
  4. DIANEAL PD4 SOLUTION WITH 4.25% DEXTROSE AND 2.5 MEQ/L CALCIUM [Suspect]
     Indication: PERITONEAL DIALYSIS
     Route: 033

REACTIONS (5)
  - Myocardial infarction [Recovered/Resolved]
  - Heart rate irregular [Recovered/Resolved]
  - Chest pain [Not Recovered/Not Resolved]
  - Accidental exposure to product [Unknown]
  - Hypotension [Unknown]
